FAERS Safety Report 9506016 (Version 1)
Quarter: 2013Q1

REPORT INFORMATION
  Report Type: Spontaneous
  Country: US (occurrence: None)
  Receive Date: 20130305
  Receipt Date: 20130305
  Transmission Date: 20140127
  Serious: Yes (Hospitalization, Other)
  Sender: FDA-Public Use
  Company Number: 163-21880-12050217

PATIENT
  Age: 55 Year
  Sex: Female

DRUGS (8)
  1. REVLIMID (LENALIDOMIDE) (CAPSULES) [Suspect]
     Indication: PLASMA CELL MYELOMA
     Dosage: 15 MG, 1 IN 1 D, PO
     Route: 048
     Dates: start: 20120314, end: 20120403
  2. ALLOPURINOL (ALLOPURINOL (UNKNOWN) [Concomitant]
  3. AMLODIPINE (AMLODIPINE) [Concomitant]
  4. CITALOPRAM (CITALOPRAM) [Concomitant]
  5. COLACE (DOCUSATE SODIUM) [Concomitant]
  6. HYDROCODONE (HYDROCODONE) [Concomitant]
  7. ALBUTEROL (SALBUTAMOL) [Concomitant]
  8. DEXAMETHASONE (DEXAMETHASONE) [Concomitant]

REACTIONS (6)
  - Malaise [None]
  - Abasia [None]
  - Speech disorder [None]
  - Chest pain [None]
  - Hepatic enzyme increased [None]
  - Dizziness [None]
